FAERS Safety Report 5617579-4 (Version None)
Quarter: 2008Q1

REPORT INFORMATION
  Report Type: 
  Country: None (occurrence: None)
  Receive Date: 20080207
  Receipt Date: 20070907
  Transmission Date: 20080703
  Serious: No
  Sender: FDA-Public Use
  Company Number: A0679697A

PATIENT
  Sex: Male

DRUGS (3)
  1. PAROXETINE [Suspect]
     Indication: PANIC DISORDER
     Dosage: 10MG PER DAY
     Route: 048
     Dates: start: 20070906
  2. ZOCOR [Concomitant]
  3. PRILOSEC [Concomitant]

REACTIONS (3)
  - ABDOMINAL DISCOMFORT [None]
  - FEELING JITTERY [None]
  - PHOTOPSIA [None]
